FAERS Safety Report 13393153 (Version 2)
Quarter: 2018Q1

REPORT INFORMATION
  Report Type: Spontaneous
  Country: AU (occurrence: AU)
  Receive Date: 20170331
  Receipt Date: 20180131
  Transmission Date: 20180508
  Serious: Yes (Death, Other)
  Sender: FDA-Public Use
  Company Number: AU-PFIZER INC-2017134714

PATIENT
  Age: 79 Year
  Sex: Male
  Weight: 98 kg

DRUGS (2)
  1. EPIPEN [Suspect]
     Active Substance: EPINEPHRINE
     Indication: ALLERGY TO ARTHROPOD BITE
     Dosage: 2 DF, UNK
     Dates: start: 20170221
  2. EPIPEN [Suspect]
     Active Substance: EPINEPHRINE
     Dosage: 2 DF, UNK
     Dates: start: 20170221

REACTIONS (3)
  - Anaphylactic reaction [Fatal]
  - Myocardial infarction [Unknown]
  - Product use issue [Unknown]

NARRATIVE: CASE EVENT DATE: 20170221
